FAERS Safety Report 9435946 (Version 2)
Quarter: 2013Q3

REPORT INFORMATION
  Report Type: Spontaneous
  Country: US (occurrence: US)
  Receive Date: 20130801
  Receipt Date: 20130807
  Transmission Date: 20140515
  Serious: Yes (Other)
  Sender: FDA-Public Use
  Company Number: ALCN2013US000731

PATIENT
  Age: 86 Year
  Sex: Female

DRUGS (8)
  1. TRAVATAN Z (SOFZIA) [Suspect]
     Indication: GLAUCOMA
     Dosage: 1 GTT, QD
     Route: 047
     Dates: start: 201304, end: 201307
  2. METOPROLOL [Concomitant]
     Dosage: 25 MG, UNK
     Route: 048
  3. SPIRONOLACTONE [Concomitant]
     Dosage: 25 MG, UNK
     Route: 048
  4. LORAZEPAM [Concomitant]
     Dosage: 1 MG, BID
     Route: 048
  5. SIMVASTATIN [Concomitant]
     Dosage: 20 MG, UNK
     Route: 048
  6. ZANTAC [Concomitant]
     Dosage: 150 MG, UNK
     Route: 048
  7. TYLENOL [Concomitant]
     Dosage: UNK, PRN
     Route: 048
  8. ALPHAGAN [Concomitant]
     Indication: GLAUCOMA
     Dosage: UNK, QD
     Dates: start: 201307

REACTIONS (4)
  - Hallucination [Recovered/Resolved]
  - Eye irritation [Recovering/Resolving]
  - Eye pruritus [Recovering/Resolving]
  - Vision blurred [Recovering/Resolving]
